FAERS Safety Report 9607400 (Version 1)
Quarter: 2013Q4

REPORT INFORMATION
  Report Type: Spontaneous
  Country: US (occurrence: None)
  Receive Date: 20131004
  Receipt Date: 20131004
  Transmission Date: 20140711
  Serious: Yes (Other)
  Sender: FDA-Public Use
  Company Number: 2013US009393

PATIENT
  Sex: Female

DRUGS (6)
  1. ALOXI [Suspect]
     Indication: PROPHYLAXIS OF NAUSEA AND VOMITING
  2. TRISENOX [Suspect]
  3. DIFLUCAN [Suspect]
  4. ATIVAN (LORAZEPAM) [Concomitant]
  5. ZOFRAN (ONDANSETRON HYDROCHLORIDE) [Concomitant]
  6. REGLAN (METOCLOPRAMIDE) [Concomitant]

REACTIONS (3)
  - Electrocardiogram QT prolonged [None]
  - Nausea [None]
  - Off label use [None]
